FAERS Safety Report 6785634-1 (Version None)
Quarter: 2010Q2

REPORT INFORMATION
  Report Type: 
  Country: None (occurrence: None)
  Receive Date: 20100623
  Receipt Date: 20100621
  Transmission Date: 20101027
  Serious: Yes (Death, Life-Threatening)
  Sender: FDA-Public Use
  Company Number: JP-JNJFOC-20061004948

PATIENT
  Sex: Male

DRUGS (4)
  1. ITRIZOLE [Suspect]
     Indication: DRUG USE FOR UNKNOWN INDICATION
     Route: 048
  2. INSULIN [Concomitant]
     Route: 065
  3. ADRENAL HORMONE PREPARATION [Concomitant]
     Route: 065
  4. AGENTS FOR PEPTIC ULCER [Concomitant]
     Route: 065

REACTIONS (1)
  - CARDIAC ARREST [None]
